FAERS Safety Report 9892319 (Version 1)
Quarter: 2014Q1

REPORT INFORMATION
  Report Type: Spontaneous
  Country: US (occurrence: US)
  Receive Date: 20140212
  Receipt Date: 20140212
  Transmission Date: 20141002
  Serious: No
  Sender: FDA-Public Use
  Company Number: US-MALLINCKRODT-T201401136

PATIENT
  Age: 88 Year
  Sex: Female
  Weight: 77.98 kg

DRUGS (5)
  1. FENTANYL TRANSDERMAL SYSTEM [Suspect]
     Indication: BACK PAIN
     Dosage: 25 UG/HR, Q 72 HRS
     Route: 062
     Dates: start: 20140121, end: 20140123
  2. FENTANYL TRANSDERMAL SYSTEM [Suspect]
     Dosage: 1/2 OF 25 MCG/HR FTS Q 72 HRS
     Route: 062
     Dates: start: 20140123
  3. HYDROCODONE [Concomitant]
     Dosage: 10 MG Q4 HOURS
     Dates: start: 2013
  4. HYDROCODONE [Concomitant]
     Dosage: 10 MG Q6 HOURS
  5. HYDROCODONE [Concomitant]
     Dosage: UNK

REACTIONS (4)
  - Hot flush [Recovered/Resolved]
  - Flushing [Recovered/Resolved]
  - Hyperhidrosis [Recovered/Resolved]
  - Wrong technique in drug usage process [Not Recovered/Not Resolved]
